FAERS Safety Report 17631115 (Version 1)
Quarter: 2020Q2

REPORT INFORMATION
  Report Type: Spontaneous
  Country: US (occurrence: US)
  Receive Date: 20200406
  Receipt Date: 20200406
  Transmission Date: 20200713
  Serious: No
  Sender: FDA-Public Use
  Company Number: US-GALDERMA-US2020001290

PATIENT
  Age: 63 Year
  Sex: Female

DRUGS (3)
  1. PROACTIV MD DEEP CLEANSING FACE WASH [Concomitant]
     Active Substance: COSMETICS
     Indication: ACNE
     Route: 061
     Dates: start: 20191220, end: 20191224
  2. PROACTIV MD ADAPALENE ACNE TREATMENT [Suspect]
     Active Substance: ADAPALENE
     Indication: ACNE
     Dosage: 0.1%
     Route: 061
     Dates: start: 20191220, end: 20191224
  3. PROACTIV AMAZONIAN CLAY MASK [Concomitant]
     Indication: ACNE
     Route: 061
     Dates: start: 20191220, end: 20191224

REACTIONS (5)
  - Skin swelling [Recovered/Resolved]
  - Skin exfoliation [Recovered/Resolved]
  - Chemical burn of skin [Recovered/Resolved]
  - Erythema [Recovered/Resolved]
  - Skin burning sensation [Recovered/Resolved]

NARRATIVE: CASE EVENT DATE: 20191224
